FAERS Safety Report 5279148-8 (Version None)
Quarter: 2007Q1

REPORT INFORMATION
  Report Type: 
  Country: None (occurrence: None)
  Receive Date: 20070328
  Receipt Date: 20061213
  Transmission Date: 20070707
  Serious: No
  Sender: FDA-Public Use
  Company Number: US-BRISTOL-MYERS SQUIBB COMPANY-13610753

PATIENT
  Age: 73 Year
  Sex: Male
  Weight: 91 kg

DRUGS (5)
  1. SPRYCEL [Suspect]
     Indication: CHRONIC MYELOID LEUKAEMIA
     Route: 048
     Dates: start: 20061101
  2. BACTRIM [Concomitant]
  3. MINOCYCLINE HCL [Concomitant]
  4. MONOPRIL [Concomitant]
  5. ATENOLOL [Concomitant]

REACTIONS (2)
  - PRODUCTIVE COUGH [None]
  - PYREXIA [None]
